FAERS Safety Report 9331982 (Version 3)
Quarter: 2013Q4

REPORT INFORMATION
  Report Type: Spontaneous
  Country: US (occurrence: US)
  Receive Date: 20130605
  Receipt Date: 20131227
  Transmission Date: 20140711
  Serious: Yes (Hospitalization)
  Sender: FDA-Public Use
  Company Number: US-B.I. PHARMACEUTICALS,INC./RIDGEFIELD-2013-BI-15785BP

PATIENT
  Sex: Female
  Weight: 63.5 kg

DRUGS (14)
  1. PRADAXA [Suspect]
     Indication: ATRIAL FIBRILLATION
     Dosage: 300 MG
     Route: 048
     Dates: start: 20111028, end: 20120219
  2. CLOBETASOL [Concomitant]
     Route: 061
  3. LEVOXYL [Concomitant]
     Dosage: 75 MCG
     Route: 048
  4. HYDROCHLOROTHIAZIDE [Concomitant]
  5. LISINOPRIL [Concomitant]
     Route: 048
  6. VOLTAREN [Concomitant]
     Route: 061
  7. GLUCOSAMINE [Concomitant]
     Dosage: 500 MG
     Route: 048
  8. ALEVE [Concomitant]
     Dosage: 880 MG
     Route: 048
  9. FIBER [Concomitant]
     Route: 048
  10. ASPIRIN [Concomitant]
     Dosage: 81 MG
     Route: 048
  11. AMLODIPINE [Concomitant]
     Dosage: 5 MG
     Route: 048
  12. ATORVASTATIN [Concomitant]
     Dosage: 20 MG
     Route: 048
  13. ASTELIN [Concomitant]
  14. LORATADINE [Concomitant]
     Dosage: 10 MG
     Route: 048

REACTIONS (4)
  - Lower gastrointestinal haemorrhage [Recovered/Resolved]
  - Colitis [Unknown]
  - Anaemia [Unknown]
  - Haematuria [Unknown]
